FAERS Safety Report 10759553 (Version 5)
Quarter: 2023Q2

REPORT INFORMATION
  Report Type: Report from Study
  Country: US (occurrence: US)
  Receive Date: 20150203
  Receipt Date: 20230609
  Transmission Date: 20230722
  Serious: Yes (Other)
  Sender: FDA-Public Use
  Company Number: US-JAZZ-2014-US-014758

PATIENT
  Sex: Male

DRUGS (8)
  1. XYREM [Suspect]
     Active Substance: SODIUM OXYBATE
     Indication: Narcolepsy
     Dosage: 2.25 GRAM, BID
     Route: 048
     Dates: start: 200901
  2. XYREM [Suspect]
     Active Substance: SODIUM OXYBATE
     Dosage: DOSE ADJUSTMENTS
  3. XYREM [Suspect]
     Active Substance: SODIUM OXYBATE
     Dosage: 5.25 GRAM, BID
     Dates: start: 201203
  4. PROZAC [Concomitant]
     Active Substance: FLUOXETINE HYDROCHLORIDE
     Indication: Obsessive-compulsive disorder
     Dosage: UNK
     Dates: end: 2013
  5. PROZAC [Concomitant]
     Active Substance: FLUOXETINE HYDROCHLORIDE
     Indication: Depression
  6. CORTEF [Concomitant]
     Active Substance: HYDROCORTISONE
     Indication: Arthropathy
     Dosage: UNK
  7. HERBALS\SAW PALMETTO [Concomitant]
     Active Substance: HERBALS\SAW PALMETTO
     Indication: Product used for unknown indication
     Dosage: UNK
     Dates: start: 20150902
  8. LISINOPRIL [Concomitant]
     Active Substance: LISINOPRIL
     Indication: Product used for unknown indication
     Dosage: UNK
     Dates: start: 20200403

REACTIONS (19)
  - Prostate cancer [Recovering/Resolving]
  - Depression [Recovered/Resolved]
  - Hypertension [Recovered/Resolved]
  - Influenza [Unknown]
  - Insulin resistance [Not Recovered/Not Resolved]
  - Homocysteine urine present [Unknown]
  - Gout [Not Recovered/Not Resolved]
  - Limb injury [Unknown]
  - Neck injury [Unknown]
  - Psychomotor retardation [Unknown]
  - Mucosal disorder [Unknown]
  - Vitamin D deficiency [Unknown]
  - Weight increased [Unknown]
  - Rosacea [Unknown]
  - Liver function test increased [Unknown]
  - Fall [Recovered/Resolved]
  - Tremor [Unknown]
  - Weight decreased [Not Recovered/Not Resolved]
  - Prescribed overdose [Unknown]

NARRATIVE: CASE EVENT DATE: 20120101
